FAERS Safety Report 22279367 (Version 8)
Quarter: 2024Q1

REPORT INFORMATION
  Report Type: Spontaneous
  Country: US (occurrence: US)
  Receive Date: 20230503
  Receipt Date: 20240116
  Transmission Date: 20240409
  Serious: Yes (Other)
  Sender: FDA-Public Use
  Company Number: US-PFIZER INC-202300173726

PATIENT
  Age: 78 Year
  Sex: Male
  Weight: 135.14 kg

DRUGS (14)
  1. VYNDAMAX [Suspect]
     Active Substance: TAFAMIDIS
     Indication: Acquired ATTR amyloidosis
     Dosage: 61 MG, 1X/DAY
     Route: 048
     Dates: start: 20220101
  2. SIMVASTATIN [Concomitant]
     Active Substance: SIMVASTATIN
     Indication: Blood cholesterol increased
     Dosage: UNK
     Route: 048
     Dates: start: 2000
  3. SIMVASTATIN [Concomitant]
     Active Substance: SIMVASTATIN
     Dosage: 40 MG, DAILY
     Route: 048
     Dates: start: 2002
  4. OMEPRAZOLE [Concomitant]
     Active Substance: OMEPRAZOLE
     Indication: Gastrooesophageal reflux disease
     Dosage: UNK
     Route: 048
     Dates: start: 2005
  5. OMEPRAZOLE [Concomitant]
     Active Substance: OMEPRAZOLE
     Dosage: 20 MG, 2X/DAY
     Route: 048
     Dates: start: 2013
  6. ALLOPURINOL [Concomitant]
     Active Substance: ALLOPURINOL
     Indication: Gout
     Dosage: 300 MG, 1X/DAY
     Dates: start: 201904
  7. METOPROLOL [Concomitant]
     Active Substance: METOPROLOL
     Indication: Cardiac disorder
     Dosage: 25 MG, 2X/DAY (ONLY TAKES IF BLOOD PRESSURE IS OVER 100)
     Route: 048
     Dates: start: 2018
  8. VALSARTAN [Concomitant]
     Active Substance: VALSARTAN
     Indication: Hypertension
     Dosage: IN THE MORNING AND AT NIGHT IF BLOOD PRESSURE IS ABOVE 110
     Route: 048
     Dates: start: 2017
  9. TALTZ [Concomitant]
     Active Substance: IXEKIZUMAB
     Indication: Ankylosing spondylitis
     Dosage: 80 MG (EVERY 4 WEEKS)
     Dates: start: 2019
  10. TALTZ [Concomitant]
     Active Substance: IXEKIZUMAB
     Indication: Arthritis
     Dosage: UNK
     Dates: start: 2020
  11. MELATONIN [Concomitant]
     Active Substance: MELATONIN
     Dosage: UNK
  12. TORSEMIDE [Concomitant]
     Active Substance: TORSEMIDE
     Indication: Cardiac failure congestive
     Dosage: 20 MG, 2X/DAY
     Route: 048
     Dates: start: 2021
  13. TORSEMIDE [Concomitant]
     Active Substance: TORSEMIDE
     Dosage: 4 DF
     Route: 048
  14. SPIRONOLACTONE [Concomitant]
     Active Substance: SPIRONOLACTONE
     Indication: Cardiac failure congestive
     Dosage: 25 MG, 1X/DAY
     Dates: start: 2021

REACTIONS (10)
  - Product supply issue [Recovering/Resolving]
  - Cardiac failure congestive [Recovering/Resolving]
  - Condition aggravated [Recovering/Resolving]
  - Renal impairment [Recovering/Resolving]
  - Peripheral swelling [Unknown]
  - Abdominal distension [Unknown]
  - Weight increased [Unknown]
  - Fluid retention [Unknown]
  - Swelling [Unknown]
  - Fatigue [Unknown]

NARRATIVE: CASE EVENT DATE: 20230201
